FAERS Safety Report 9257178 (Version 5)
Quarter: 2013Q2

REPORT INFORMATION
  Report Type: Report from Study
  Country: DE (occurrence: DE)
  Receive Date: 20130426
  Receipt Date: 20130520
  Transmission Date: 20140414
  Serious: Yes (Hospitalization, Other)
  Sender: FDA-Public Use
  Company Number: DE-ROCHE-1216382

PATIENT
  Age: 48 Year
  Sex: Male
  Weight: 96 kg

DRUGS (14)
  1. TOCILIZUMAB [Suspect]
     Indication: RHEUMATOID ARTHRITIS
     Route: 042
     Dates: start: 20110412, end: 20120731
  2. TOCILIZUMAB [Suspect]
     Route: 042
     Dates: start: 20120508
  3. TOCILIZUMAB [Suspect]
     Route: 042
     Dates: start: 20120605
  4. TOCILIZUMAB [Suspect]
     Route: 042
     Dates: start: 20120703
  5. TOCILIZUMAB [Suspect]
     Route: 042
     Dates: start: 20120731
  6. GOLIMUMAB [Suspect]
     Indication: RHEUMATOID ARTHRITIS
     Route: 065
     Dates: start: 20120912
  7. LEFLUNOMID [Suspect]
     Indication: RHEUMATOID ARTHRITIS
     Route: 048
     Dates: start: 20111220, end: 20130117
  8. METHOTREXATE [Concomitant]
     Indication: RHEUMATOID ARTHRITIS
     Route: 051
     Dates: start: 201009
  9. AZATHIOPRIN [Concomitant]
     Indication: RHEUMATOID ARTHRITIS
     Route: 065
     Dates: start: 201009
  10. FOLIC ACID [Concomitant]
     Route: 065
     Dates: start: 200706
  11. CELECOXIB [Concomitant]
     Route: 065
     Dates: start: 200901
  12. PREDNISOLON [Concomitant]
     Route: 065
  13. PREDNISOLON [Concomitant]
     Route: 065
  14. PREDNISOLON [Concomitant]
     Route: 065

REACTIONS (9)
  - Pulmonary embolism [Recovering/Resolving]
  - Myositis [Recovered/Resolved]
  - Blood creatine phosphokinase increased [Recovering/Resolving]
  - Pneumonia [Recovered/Resolved]
  - Acute tonsillitis [Recovered/Resolved]
  - Deep vein thrombosis [Recovering/Resolving]
  - Staphylococcal sepsis [Recovered/Resolved]
  - Pharyngitis [Unknown]
  - Tracheobronchitis [Unknown]
